FAERS Safety Report 18090907 (Version 4)
Quarter: 2022Q1

REPORT INFORMATION
  Report Type: Spontaneous
  Country: BE (occurrence: BE)
  Receive Date: 20200730
  Receipt Date: 20220307
  Transmission Date: 20220424
  Serious: Yes (Life-Threatening, Hospitalization, Disabling, Other)
  Sender: FDA-Public Use
  Company Number: BE-AUROBINDO-AUR-APL-2017-29417

PATIENT
  Age: 61 Year
  Sex: Male

DRUGS (30)
  1. DOXORUBICIN [Suspect]
     Active Substance: DOXORUBICIN
     Indication: Non-Hodgkin^s lymphoma
     Dosage: UNK,R-CHOP
     Route: 065
  2. MELPHALAN [Suspect]
     Active Substance: MELPHALAN
     Indication: Non-Hodgkin^s lymphoma
     Dosage: 30 MILLIGRAM/SQ. METER, CYCLICAL, ON DAY 6
     Route: 065
  3. MELPHALAN [Suspect]
     Active Substance: MELPHALAN
     Dosage: 140 MILLIGRAM/SQ. METER, CYCLICAL,ON DAY 2 TO 6
     Route: 065
  4. CARBOPLATIN [Suspect]
     Active Substance: CARBOPLATIN
     Indication: Non-Hodgkin^s lymphoma
     Dosage: R-ICE
     Route: 065
  5. CARMUSTINE [Suspect]
     Active Substance: CARMUSTINE
     Indication: Non-Hodgkin^s lymphoma
     Dosage: 60 MILLIGRAM/SQ. METER, CYCLICAL,ON DAY 1
     Route: 065
  6. CARMUSTINE [Suspect]
     Active Substance: CARMUSTINE
     Dosage: 30 MILLIGRAM/SQ. METER, CYCLICAL,ON DAY 1
     Route: 065
  7. CARMUSTINE [Suspect]
     Active Substance: CARMUSTINE
     Dosage: 300 MILLIGRAM/SQ. METER ON DAY 1
     Route: 065
  8. CISPLATIN [Suspect]
     Active Substance: CISPLATIN
     Indication: Non-Hodgkin^s lymphoma
     Dosage: UNK,1 CYCLE,R-CHOP
     Route: 065
  9. CYCLOPHOSPHAMIDE [Suspect]
     Active Substance: CYCLOPHOSPHAMIDE
     Indication: Non-Hodgkin^s lymphoma
     Dosage: UNK,HIGH DOSE
     Route: 065
  10. CYCLOPHOSPHAMIDE [Suspect]
     Active Substance: CYCLOPHOSPHAMIDE
     Dosage: R-CHOP
     Route: 065
  11. CYCLOPHOSPHAMIDE [Suspect]
     Active Substance: CYCLOPHOSPHAMIDE
     Dosage: UNK
     Route: 065
     Dates: start: 201308
  12. CYTARABINE [Suspect]
     Active Substance: CYTARABINE
     Indication: Non-Hodgkin^s lymphoma
     Dosage: 100 MILLIGRAM/SQ. METER, CYCLICAL,2 ? 100 MG/M2 ON DAY 2,3,4,5
     Route: 065
  13. CYTARABINE [Suspect]
     Active Substance: CYTARABINE
     Dosage: UNK,1 CYCLE,R-DHAP
     Route: 065
  14. CYTARABINE [Suspect]
     Active Substance: CYTARABINE
     Dosage: 200 MILLIGRAM/SQ. METER, CYCLICAL ON DAY 2,3,4 AND 5
     Route: 065
  15. CYTARABINE [Suspect]
     Active Substance: CYTARABINE
     Dosage: 400 MILLIGRAM/SQ. METER, ONCE A DAY, DAY 2-5
     Route: 065
  16. DEXAMETHASONE [Suspect]
     Active Substance: DEXAMETHASONE
     Indication: Non-Hodgkin^s lymphoma
     Dosage: UNK,1 CYCLE,R-DHAP
     Route: 065
  17. ETOPOSIDE [Suspect]
     Active Substance: ETOPOSIDE
     Indication: Non-Hodgkin^s lymphoma
     Dosage: 15 MILLIGRAM/SQ. METER, CYCLICAL ON DAY 2?5
     Route: 065
  18. ETOPOSIDE [Suspect]
     Active Substance: ETOPOSIDE
     Dosage: UNK,R-ICE
     Route: 065
  19. ETOPOSIDE [Suspect]
     Active Substance: ETOPOSIDE
     Dosage: 200 MILLIGRAM/SQ. METER, CYCLICAL,ON DAY 2 TO 5
     Route: 065
  20. ETOPOSIDE [Suspect]
     Active Substance: ETOPOSIDE
     Dosage: 800 MILLIGRAM/SQ. METER, CYCLICAL, 2-5
     Route: 065
  21. ETOPOSIDE [Suspect]
     Active Substance: ETOPOSIDE
     Dosage: 60 MILLIGRAM/SQ. METER, CYCLICAL, 2,3,4 AND 5
     Route: 065
  22. GANCICLOVIR [Suspect]
     Active Substance: GANCICLOVIR
     Indication: Cytomegalovirus infection
     Dosage: UNK, 1 WEEKS
     Route: 065
  23. GANCICLOVIR [Suspect]
     Active Substance: GANCICLOVIR
     Indication: Cytomegalovirus test positive
  24. IFOSFAMIDE [Suspect]
     Active Substance: IFOSFAMIDE
     Indication: Non-Hodgkin^s lymphoma
     Dosage: R-ICE
     Route: 065
  25. PREDNISONE [Suspect]
     Active Substance: PREDNISONE
     Indication: Non-Hodgkin^s lymphoma
     Dosage: UNK,R-CHOP
     Route: 065
  26. RITUXIMAB [Suspect]
     Active Substance: RITUXIMAB
     Indication: Non-Hodgkin^s lymphoma
     Dosage: UNK, CYCLICAL 1 CYCLE R-CHOP
     Route: 065
  27. RITUXIMAB [Suspect]
     Active Substance: RITUXIMAB
     Dosage: UNK,R-ICE
     Route: 065
  28. VINCRISTINE [Suspect]
     Active Substance: VINCRISTINE
     Indication: Non-Hodgkin^s lymphoma
     Dosage: UNK,R-CHOP
     Route: 065
  29. VINCRISTINE [Suspect]
     Active Substance: VINCRISTINE
     Indication: Kaposi^s sarcoma
  30. AMLODIPINE [Concomitant]
     Active Substance: AMLODIPINE BESYLATE
     Indication: Hypertension
     Dosage: UNK
     Route: 065

REACTIONS (7)
  - Immunosuppression [Recovered/Resolved]
  - Kaposi^s sarcoma [Recovered/Resolved]
  - Tinnitus [Recovered/Resolved]
  - Human herpesvirus 8 infection [Unknown]
  - Off label use [Unknown]
  - Skin lesion [Recovered/Resolved]
  - Product use in unapproved indication [Unknown]

NARRATIVE: CASE EVENT DATE: 20130101
